FAERS Safety Report 8900607 (Version 1)
Quarter: 2012Q4

REPORT INFORMATION
  Report Type: 
  Country: GB (occurrence: GB)
  Receive Date: 20121109
  Receipt Date: 20121109
  Transmission Date: 20130627
  Serious: Yes (Death, Other)
  Sender: FDA-Public Use
  Company Number: GB-MILLENNIUM PHARMACEUTICALS, INC.-2012-07046

PATIENT

DRUGS (8)
  1. VELCADE [Suspect]
     Indication: WALDENSTROM^S MACROGLOBULINAEMIA
     Dosage: 1.3 mg/m2, UNK
     Route: 042
     Dates: start: 20120501, end: 20120901
  2. VELCADE [Suspect]
     Indication: WALDENSTROM^S MACROGLOBULINAEMIA
  3. DEXAMETHASONE [Concomitant]
     Indication: MULTIPLE MYELOMA
  4. DEXAMETHASONE [Concomitant]
     Indication: WALDENSTROM^S MACROGLOBULINAEMIA
  5. CYCLOPHOSPHAMIDE [Concomitant]
     Indication: MULTIPLE MYELOMA
  6. CYCLOPHOSPHAMIDE [Concomitant]
     Indication: WALDENSTROM^S MACROGLOBULINAEMIA
  7. VORICONAZOLE [Concomitant]
     Indication: FUNGAL INFECTION
     Dosage: 150 mg, bid
  8. CIPROFLOXACIN [Concomitant]
     Indication: PROPHYLAXIS
     Dosage: 250 mg, bid

REACTIONS (3)
  - Lymphoma [Fatal]
  - Neutropenia [Unknown]
  - Off label use [Unknown]
